FAERS Safety Report 23591363 (Version 2)
Quarter: 2024Q1

REPORT INFORMATION
  Report Type: Report from Study
  Country: CA (occurrence: None)
  Receive Date: 20240304
  Receipt Date: 20240321
  Transmission Date: 20240410
  Serious: Yes (Death, Other)
  Sender: FDA-Public Use
  Company Number: 2024A051260

PATIENT
  Age: 31444 Day
  Sex: Male

DRUGS (6)
  1. CALQUENCE [Suspect]
     Active Substance: ACALABRUTINIB
     Indication: Chronic lymphocytic leukaemia
     Route: 048
     Dates: start: 20211018
  2. FOLIC ACID [Concomitant]
     Active Substance: FOLIC ACID
  3. TAMSULOSIN [Concomitant]
     Active Substance: TAMSULOSIN
  4. RABEPRAZOLE [Concomitant]
     Active Substance: RABEPRAZOLE
  5. ROSUVASTATIN [Concomitant]
     Active Substance: ROSUVASTATIN
  6. TRADJENTA [Concomitant]
     Active Substance: LINAGLIPTIN

REACTIONS (1)
  - Death [Fatal]

NARRATIVE: CASE EVENT DATE: 20230808
